FAERS Safety Report 21447605 (Version 1)
Quarter: 2022Q4

REPORT INFORMATION
  Report Type: Spontaneous
  Country: US (occurrence: US)
  Receive Date: 20221012
  Receipt Date: 20221012
  Transmission Date: 20230113
  Serious: No
  Sender: FDA-Public Use
  Company Number: US-PFIZER INC-202201191230

PATIENT
  Age: 74 Year
  Sex: Female
  Weight: 54.43 kg

DRUGS (4)
  1. RAPAMUNE [Suspect]
     Active Substance: SIROLIMUS
     Indication: Renal transplant
     Dosage: 0.5 MG, 1X/DAY
     Route: 048
     Dates: start: 20201225
  2. RAPAMUNE [Suspect]
     Active Substance: SIROLIMUS
     Indication: Skin cancer
  3. CYCLOSPORINE [Concomitant]
     Active Substance: CYCLOSPORINE
     Indication: Renal transplant
     Dosage: 125 MG, 1X/DAY (FIVE 25MG TABLETS A DAY BY MOUTH)
     Route: 048
     Dates: start: 19941212
  4. PREDNISONE [Concomitant]
     Active Substance: PREDNISONE
     Indication: Renal transplant
     Dosage: 2.5 MG, ALTERNATE DAY
     Route: 048
     Dates: start: 19941212

REACTIONS (3)
  - Product supply issue [Unknown]
  - Drug effective for unapproved indication [Unknown]
  - Glycosylated haemoglobin increased [Unknown]

NARRATIVE: CASE EVENT DATE: 20201225
